FAERS Safety Report 5012790-8 (Version None)
Quarter: 2006Q2

REPORT INFORMATION
  Report Type: 
  Country: None (occurrence: None)
  Receive Date: 20060530
  Receipt Date: 20060308
  Transmission Date: 20061013
  Serious: No
  Sender: FDA-Public Use
  Company Number: US-BRISTOL-MYERS SQUIBB COMPANY-13307301

PATIENT
  Age: 7 Decade
  Sex: Female

DRUGS (4)
  1. ERBITUX [Suspect]
     Indication: PANCREATIC CARCINOMA
  2. CISPLATIN [Suspect]
     Indication: PANCREATIC CARCINOMA
  3. MITOMYCIN [Suspect]
     Indication: PANCREATIC CARCINOMA
  4. CPT-11 [Suspect]
     Indication: PANCREATIC CARCINOMA

REACTIONS (2)
  - PARONYCHIA [None]
  - SKIN BURNING SENSATION [None]
